FAERS Safety Report 7497775-4 (Version None)
Quarter: 2011Q2

REPORT INFORMATION
  Report Type: 
  Country: None (occurrence: None)
  Receive Date: 20110524
  Receipt Date: 20110512
  Transmission Date: 20111010
  Serious: Yes (Hospitalization, Other)
  Sender: FDA-Public Use
  Company Number: JP-BRISTOL-MYERS SQUIBB COMPANY-14753461

PATIENT
  Age: 31 Year
  Sex: Female
  Weight: 59 kg

DRUGS (8)
  1. POSTERISAN FORTE [Concomitant]
     Dosage: OINTMENT, CREAM
     Dates: start: 20090519, end: 20090601
  2. ZITHROMAX [Concomitant]
     Dosage: TABLET
     Dates: start: 20090602, end: 20090602
  3. FERROUS CITRATE [Concomitant]
     Dosage: TABLET
     Dates: start: 20090602, end: 20090629
  4. MAGNESIUM SULFATE [Concomitant]
     Dosage: TABLET
     Dates: start: 20090519, end: 20090601
  5. LAXOBERON [Concomitant]
     Dosage: LIQUID
     Dates: start: 20090602
  6. ABILIFY [Suspect]
     Indication: SCHIZOPHRENIA
     Dosage: STRENGTH:6MG
     Route: 048
     Dates: start: 20090428
  7. RITODRINE HCL [Concomitant]
     Indication: THREATENED LABOUR
     Dosage: TABLET
     Dates: start: 20090723, end: 20090728
  8. UTEMERIN INJ [Concomitant]
     Dates: start: 20090722, end: 20090722

REACTIONS (4)
  - BREECH PRESENTATION [None]
  - LIVE BIRTH [None]
  - PREGNANCY [None]
  - CAESAREAN SECTION [None]
